FAERS Safety Report 5468937-2 (Version None)
Quarter: 2007Q3

REPORT INFORMATION
  Report Type: 
  Country: None (occurrence: None)
  Receive Date: 20070926
  Receipt Date: 20070914
  Transmission Date: 20080115
  Serious: Yes (Other)
  Sender: FDA-Public Use
  Company Number: US-GENENTECH-247784

PATIENT
  Sex: Female
  Weight: 86.621 kg

DRUGS (4)
  1. RAPTIVA [Suspect]
     Indication: PSORIASIS
     Dosage: 0.6 ML, SINGLE
     Route: 058
     Dates: start: 20070914
  2. ULTRAVATE [Concomitant]
     Indication: DRUG USE FOR UNKNOWN INDICATION
  3. DOVONEX [Concomitant]
     Indication: DRUG USE FOR UNKNOWN INDICATION
  4. ELOCON [Concomitant]
     Indication: DRUG USE FOR UNKNOWN INDICATION

REACTIONS (3)
  - DIZZINESS [None]
  - PETIT MAL EPILEPSY [None]
  - UNEVALUABLE EVENT [None]
